FAERS Safety Report 9941818 (Version 1)
Quarter: 2014Q1

REPORT INFORMATION
  Report Type: Report from Study
  Country: US (occurrence: US)
  Receive Date: 20140303
  Receipt Date: 20140303
  Transmission Date: 20141002
  Serious: No
  Sender: FDA-Public Use
  Company Number: US-ABBVIE-13P-163-1041684-00

PATIENT
  Age: 71 Year
  Sex: Female
  Weight: 83.99 kg

DRUGS (2)
  1. HUMIRA [Suspect]
     Indication: PRODUCT USED FOR UNKNOWN INDICATION
     Route: 058
     Dates: start: 2008
  2. UNKNOWN ANTIBIOTIC [Suspect]
     Indication: NASOPHARYNGITIS

REACTIONS (2)
  - Faeces discoloured [Recovered/Resolved]
  - Nasopharyngitis [Recovered/Resolved]
